FAERS Safety Report 10041758 (Version 1)
Quarter: 2014Q1

REPORT INFORMATION
  Report Type: Spontaneous
  Country: GB (occurrence: GB)
  Receive Date: 20140327
  Receipt Date: 20140327
  Transmission Date: 20141002
  Serious: Yes (Other)
  Sender: FDA-Public Use
  Company Number: GB-WATSON-2014-05494

PATIENT
  Sex: Female

DRUGS (1)
  1. SERTRALINE (UNKNOWN) [Suspect]
     Indication: PRODUCT USED FOR UNKNOWN INDICATION
     Dosage: UNK
     Route: 065

REACTIONS (5)
  - Hallucination, auditory [Unknown]
  - Anxiety [Unknown]
  - Panic attack [Unknown]
  - Nausea [Unknown]
  - Product substitution issue [Unknown]
